FAERS Safety Report 6841487-4 (Version None)
Quarter: 2010Q3

REPORT INFORMATION
  Report Type: 
  Country: None (occurrence: None)
  Receive Date: 20100714
  Receipt Date: 20070703
  Transmission Date: 20110219
  Serious: No
  Sender: FDA-Public Use
  Company Number: US-PFIZER INC-2007056244

PATIENT
  Sex: Male
  Weight: 32.3 kg

DRUGS (4)
  1. CHANTIX [Suspect]
     Indication: SMOKING CESSATION THERAPY
     Route: 048
     Dates: start: 20070701
  2. LIBRIUM [Interacting]
     Indication: ALCOHOL USE
     Dates: start: 20060626
  3. CARDIOVASCULAR SYSTEM DRUGS [Concomitant]
     Route: 048
  4. ACETYLSALICYLIC ACID [Concomitant]
     Route: 048

REACTIONS (10)
  - ABNORMAL DREAMS [None]
  - AGITATION [None]
  - DRUG INTERACTION [None]
  - FATIGUE [None]
  - FEELING DRUNK [None]
  - HEADACHE [None]
  - INCONTINENCE [None]
  - MOOD SWINGS [None]
  - PALLOR [None]
  - SLEEP TALKING [None]
